FAERS Safety Report 10035622 (Version 3)
Quarter: 2014Q3

REPORT INFORMATION
  Report Type: Spontaneous
  Country: US (occurrence: US)
  Receive Date: 20140325
  Receipt Date: 20140924
  Transmission Date: 20150326
  Serious: Yes (Life-Threatening, Congenital Anomaly, Other)
  Sender: FDA-Public Use
  Company Number: US-PFIZER INC-2014077429

PATIENT
  Sex: Female

DRUGS (5)
  1. PRENATAL VITAMINS [Concomitant]
     Active Substance: VITAMINS
     Dosage: UNK
     Route: 064
  2. EFFEXOR XR [Suspect]
     Active Substance: VENLAFAXINE HYDROCHLORIDE
     Dosage: UNK
     Route: 064
  3. SARAFEM [Concomitant]
     Active Substance: FLUOXETINE HYDROCHLORIDE
     Dosage: UNK
     Route: 064
  4. EFFEXOR [Suspect]
     Active Substance: VENLAFAXINE HYDROCHLORIDE
     Dosage: UNK
     Route: 064
     Dates: start: 200803, end: 200806
  5. PROZAC [Concomitant]
     Active Substance: FLUOXETINE HYDROCHLORIDE
     Dosage: UNK
     Route: 064

REACTIONS (5)
  - Diaphragmatic paralysis [Unknown]
  - Atrial septal defect [Unknown]
  - Anomalous pulmonary venous connection [Unknown]
  - Bicuspid aortic valve [Unknown]
  - Maternal exposure during pregnancy [Unknown]

NARRATIVE: CASE EVENT DATE: 20081226
